FAERS Safety Report 24634594 (Version 1)
Quarter: 2024Q4

REPORT INFORMATION
  Report Type: Spontaneous
  Country: US (occurrence: US)
  Receive Date: 20241119
  Receipt Date: 20241119
  Transmission Date: 20250115
  Serious: Yes (Hospitalization)
  Sender: EMCURE PHARMACEUTICALS LTD
  Company Number: US-AVET LIFESCIENCES LTD-2024-AVET-000398

PATIENT
  Age: 66 Year
  Sex: Female

DRUGS (3)
  1. BACLOFEN [Suspect]
     Active Substance: BACLOFEN
     Indication: Muscle spasticity
     Dosage: N INTRATHECAL BACLOFEN DOSE OF 1638 MICROGRAMS PER DAY AND WAS HAVING HER INTRATHECAL PUMP REFILLED
     Route: 037
  2. BACLOFEN [Suspect]
     Active Substance: BACLOFEN
     Dosage: 2000 MCG/ML CONCENTRATION OF BACLOFEN
  3. BACLOFEN [Suspect]
     Active Substance: BACLOFEN
     Dosage: REDUCED TO 200 MICROGRAMS PER DAY

REACTIONS (6)
  - Withdrawal syndrome [Recovered/Resolved]
  - Tremor [Recovered/Resolved]
  - Pruritus [Recovered/Resolved]
  - Muscle spasms [Recovered/Resolved]
  - Asthenia [Recovered/Resolved]
  - Hyperhidrosis [Recovered/Resolved]
